FAERS Safety Report 7842446-5 (Version None)
Quarter: 2011Q4

REPORT INFORMATION
  Report Type: 
  Country: None (occurrence: None)
  Receive Date: 20111025
  Receipt Date: 20111014
  Transmission Date: 20120403
  Serious: Yes (Hospitalization, Other)
  Sender: FDA-Public Use
  Company Number: PHHY2011BR91258

PATIENT
  Sex: Male
  Weight: 75 kg

DRUGS (5)
  1. EXELON [Suspect]
     Indication: DEMENTIA ALZHEIMER'S TYPE
     Dosage: 1.5 MG, BID
     Route: 048
  2. CRESTOR [Concomitant]
     Dosage: 10 MG, ONE TABLET AT NIGHT
     Route: 048
     Dates: end: 20111002
  3. ISOSORBIDE MONONITRATE [Concomitant]
     Dosage: 25 MG, QD
     Route: 048
     Dates: end: 20111002
  4. FLUOXETINE [Concomitant]
     Indication: ANXIETY
     Dosage: 20 MG, QD
     Route: 048
  5. ASPIRIN [Concomitant]
     Indication: PHLEBECTOMY
     Dosage: 100 MG, QD
     Route: 048

REACTIONS (9)
  - SKIN EXFOLIATION [None]
  - JOINT INJURY [None]
  - MYDRIASIS [None]
  - INCORRECT DOSE ADMINISTERED [None]
  - DELIRIUM [None]
  - CEREBROVASCULAR ACCIDENT [None]
  - AGGRESSION [None]
  - MYOCARDIAL INFARCTION [None]
  - HALLUCINATION [None]
